FAERS Safety Report 9109882 (Version 1)
Quarter: 2013Q1

REPORT INFORMATION
  Report Type: Spontaneous
  Country: US (occurrence: US)
  Receive Date: 20130222
  Receipt Date: 20130222
  Transmission Date: 20140127
  Serious: Yes (Other)
  Sender: FDA-Public Use
  Company Number: US-BAYER-2013-023335

PATIENT
  Age: 88 Year
  Sex: Female
  Weight: 66 kg

DRUGS (10)
  1. BAYER ASPIRIN REGIMEN ADULT LOW STRENGTH [Suspect]
     Indication: ISCHAEMIC HEART DISEASE PROPHYLAXIS
     Dosage: 162 MG, QD
     Route: 048
  2. HYDRALAZINE [Concomitant]
  3. COZAAR [Concomitant]
  4. DIOVAN [Concomitant]
  5. FOSAMAX [Concomitant]
  6. LISINOPRIL [Concomitant]
  7. METOPROLOL [Concomitant]
  8. SIMVASTATIN [Concomitant]
  9. MULTIVITAMIN [Concomitant]
  10. CALCIUM [Concomitant]

REACTIONS (5)
  - Blood cholesterol increased [None]
  - Hypertension [None]
  - Osteoporosis [None]
  - Diabetes mellitus [None]
  - Medication error [None]
